FAERS Safety Report 8958358 (Version 1)
Quarter: 2012Q4

REPORT INFORMATION
  Report Type: 
  Country: US (occurrence: US)
  Receive Date: 20121210
  Receipt Date: 20121210
  Transmission Date: 20130627
  Serious: Yes (Death)
  Sender: FDA-Public Use
  Company Number: US-GLAXOSMITHKLINE-A0887144A

PATIENT
  Age: 42 Year
  Sex: Male

DRUGS (1)
  1. AVANDIA [Suspect]
     Indication: DIABETES MELLITUS
     Route: 048
     Dates: start: 20020711, end: 20070127

REACTIONS (4)
  - Death [Fatal]
  - Myocardial infarction [Unknown]
  - Coronary artery bypass [Unknown]
  - Cardiac failure congestive [Unknown]
